FAERS Safety Report 12548481 (Version 1)
Quarter: 2016Q3

REPORT INFORMATION
  Report Type: Spontaneous
  Country: DK (occurrence: DK)
  Receive Date: 20160712
  Receipt Date: 20160712
  Transmission Date: 20161109
  Serious: Yes (Life-Threatening, Hospitalization)
  Sender: FDA-Public Use
  Company Number: DK-WATSON-2016-14914

PATIENT
  Age: 60 Year
  Sex: Female

DRUGS (1)
  1. ENALAPRIL (UNKNOWN) [Suspect]
     Active Substance: ENALAPRIL
     Indication: ESSENTIAL HYPERTENSION
     Dosage: ONCE NIGHTLY
     Route: 065

REACTIONS (1)
  - Angioedema [Recovered/Resolved]
